FAERS Safety Report 21846197 (Version 3)
Quarter: 2023Q1

REPORT INFORMATION
  Report Type: Report from Study
  Country: IN (occurrence: IN)
  Receive Date: 20230111
  Receipt Date: 20230223
  Transmission Date: 20230417
  Serious: Yes (Other)
  Sender: FDA-Public Use
  Company Number: IN-002147023-NVSC2022IN015198

PATIENT
  Sex: Female

DRUGS (7)
  1. SECUKINUMAB [Suspect]
     Active Substance: SECUKINUMAB
     Indication: Psoriasis
     Dosage: 300 MG, BIW
     Route: 058
     Dates: start: 20211124
  2. SECUKINUMAB [Suspect]
     Active Substance: SECUKINUMAB
     Indication: Psoriatic arthropathy
     Dosage: 300 MG, QMO
     Route: 058
     Dates: start: 20220113
  3. SECUKINUMAB [Suspect]
     Active Substance: SECUKINUMAB
     Dosage: 300 MG (ONCE A WEEK FOR 0,1,2,3,4 WEEKS AND EVERY 4 WEEKS ONCE FOR 5 DOSES)
     Route: 058
     Dates: start: 20220617
  4. SECUKINUMAB [Suspect]
     Active Substance: SECUKINUMAB
     Dosage: 300 MG
     Route: 058
     Dates: start: 20230127
  5. ETOSHINE [Concomitant]
     Indication: Product used for unknown indication
     Dosage: 1 DOSAGE FORM, QD (AFTER FOOD)
     Route: 065
  6. PANTOCID [Concomitant]
     Indication: Product used for unknown indication
     Dosage: 1 DOSAGE FORM, QD (BEFORE FOOD 30 MIN)
     Route: 065
  7. PREDNISOLONE [Concomitant]
     Active Substance: PREDNISOLONE
     Indication: Product used for unknown indication
     Dosage: 1 DOSAGE FORM, QD (AFTER BREAKFAST) FOR 5 WEEKS
     Route: 065

REACTIONS (8)
  - Polyarthritis [Unknown]
  - Diabetes mellitus [Unknown]
  - Skin lesion [Unknown]
  - Joint swelling [Unknown]
  - Psoriasis [Unknown]
  - Pain in extremity [Unknown]
  - Neck pain [Unknown]
  - Arthralgia [Unknown]
